FAERS Safety Report 15548493 (Version 1)
Quarter: 2018Q4

REPORT INFORMATION
  Report Type: Spontaneous
  Country: US (occurrence: US)
  Receive Date: 20181025
  Receipt Date: 20181025
  Transmission Date: 20190205
  Serious: Yes (Other)
  Sender: FDA-Public Use
  Company Number: US-DRREDDYS-USA/USA/18/0104952

PATIENT
  Sex: Female

DRUGS (4)
  1. METRONIDAZOLE. [Suspect]
     Active Substance: METRONIDAZOLE
     Indication: DIARRHOEA
     Route: 065
  2. VANCOMYCIN [Suspect]
     Active Substance: VANCOMYCIN
     Indication: DIARRHOEA
     Route: 065
  3. OMNICEF [Suspect]
     Active Substance: CEFDINIR
     Indication: PNEUMONIA
     Route: 065
  4. AUGMENTIN [Suspect]
     Active Substance: AMOXICILLIN\CLAVULANATE POTASSIUM
     Indication: PNEUMONIA
     Route: 065

REACTIONS (2)
  - Palpitations [Unknown]
  - Clostridium difficile colitis [Unknown]

NARRATIVE: CASE EVENT DATE: 20180820
